FAERS Safety Report 4442803-3 (Version None)
Quarter: 2004Q3

REPORT INFORMATION
  Report Type: 
  Country: None (occurrence: None)
  Receive Date: 20040903
  Receipt Date: 20040609
  Transmission Date: 20050211
  Serious: Yes (Other)
  Sender: FDA-Public Use
  Company Number: 2004UW12017

PATIENT
  Age: 73 Year
  Sex: Female
  Weight: 67.586 kg

DRUGS (3)
  1. CRESTOR [Suspect]
     Indication: HYPERCHOLESTEROLAEMIA
     Dosage: 10 MG DAILY PO
     Route: 048
  2. EVISTA [Concomitant]
  3. IMODIUM [Concomitant]

REACTIONS (5)
  - ARTHRALGIA [None]
  - ASTHENIA [None]
  - FEELING ABNORMAL [None]
  - MYALGIA [None]
  - SENSATION OF HEAVINESS [None]
